FAERS Safety Report 9009302 (Version 3)
Quarter: 2013Q1

REPORT INFORMATION
  Report Type: Spontaneous
  Country: JP (occurrence: JP)
  Receive Date: 20130111
  Receipt Date: 20130116
  Transmission Date: 20140127
  Serious: Yes (Other)
  Sender: FDA-Public Use
  Company Number: JP-PFIZER INC-2013005672

PATIENT
  Age: 45 Year
  Sex: Male

DRUGS (2)
  1. SOLU-CORTEF [Suspect]
     Indication: DEAFNESS
     Dosage: 600 MG, UNK
     Route: 041
     Dates: start: 20121228, end: 20121229
  2. METHYCOBAL [Concomitant]
     Indication: DEAFNESS
     Dosage: 500 UG, 1X/DAY
     Route: 048
     Dates: start: 20121228

REACTIONS (4)
  - Hypokalaemia [Recovered/Resolved]
  - Muscular weakness [Unknown]
  - Quadriplegia [Unknown]
  - Atonic seizures [Unknown]
